FAERS Safety Report 17065485 (Version 1)
Quarter: 2019Q4

REPORT INFORMATION
  Report Type: Spontaneous
  Country: US (occurrence: US)
  Receive Date: 20191122
  Receipt Date: 20191122
  Transmission Date: 20200122
  Serious: Yes (Other)
  Sender: FDA-Public Use
  Company Number: None

PATIENT
  Age: 59 Year
  Sex: Female
  Weight: 61.65 kg

DRUGS (7)
  1. ALENDRONATE SODIUM TAB 70 MG [Suspect]
     Active Substance: ALENDRONATE SODIUM
     Indication: OSTEOPOROSIS
     Dosage: ?          QUANTITY:1 TABLET(S);OTHER FREQUENCY:ONCE A WEEK;?
     Route: 048
     Dates: start: 20190823, end: 20191111
  2. FAMOTIDINE. [Concomitant]
     Active Substance: FAMOTIDINE
  3. FISH OIL [Concomitant]
     Active Substance: FISH OIL
  4. MULTI VITAMIN [Concomitant]
     Active Substance: VITAMINS
  5. EZETIMIBE. [Concomitant]
     Active Substance: EZETIMIBE
  6. LEVOTHYROXINE. [Concomitant]
     Active Substance: LEVOTHYROXINE
  7. VITAMIN D [Concomitant]
     Active Substance: VITAMIN D NOS

REACTIONS (4)
  - Gastrointestinal infection [None]
  - Abdominal pain [None]
  - Therapy cessation [None]
  - Nausea [None]

NARRATIVE: CASE EVENT DATE: 20191115
